FAERS Safety Report 5029479-1 (Version None)
Quarter: 2006Q2

REPORT INFORMATION
  Report Type: 
  Country: None (occurrence: None)
  Receive Date: 20060504
  Receipt Date: 20060110
  Transmission Date: 20061013
  Serious: No
  Sender: FDA-Public Use
  Company Number: 200512712BWH

PATIENT
  Sex: Male

DRUGS (1)
  1. LEVITRA [Suspect]
     Dosage: 10 MG, ONCE, ORAL
     Route: 048
     Dates: start: 20051118

REACTIONS (5)
  - BLISTER INFECTED [None]
  - PAIN OF SKIN [None]
  - PRURITUS [None]
  - RASH [None]
  - SEXUALLY TRANSMITTED DISEASE [None]
